FAERS Safety Report 18764861 (Version 1)
Quarter: 2021Q1

REPORT INFORMATION
  Report Type: Spontaneous
  Country: CN (occurrence: CN)
  Receive Date: 20210120
  Receipt Date: 20210120
  Transmission Date: 20210419
  Serious: Yes (Other)
  Sender: FDA-Public Use
  Company Number: CN-PFIZER INC-2021036302

PATIENT
  Age: 11 Year
  Sex: Female
  Weight: 32 kg

DRUGS (4)
  1. SOLU?MEDROL [Suspect]
     Active Substance: METHYLPREDNISOLONE SODIUM SUCCINATE
     Indication: EPILEPSY
     Dosage: 60 MG, 1X/DAY
     Route: 041
     Dates: start: 20201105, end: 20201124
  2. SOLU?MEDROL [Suspect]
     Active Substance: METHYLPREDNISOLONE SODIUM SUCCINATE
     Indication: EPILEPSY
     Dosage: 0.5 G, 1X/DAY (ALONG WITH 4:1 GLUCOSE SODIUM CHLORIDE 250ML)
     Route: 041
     Dates: start: 20201102, end: 20201104
  3. PREDNISONE ACETATE [Suspect]
     Active Substance: PREDNISONE ACETATE
     Dosage: 20 MG, 2X/DAY
     Route: 048
     Dates: start: 20201202, end: 20201229
  4. PREDNISONE ACETATE [Suspect]
     Active Substance: PREDNISONE ACETATE
     Indication: PSYCHOMOTOR SKILLS IMPAIRED
     Dosage: 25 MG, 2X/DAY
     Route: 048
     Dates: start: 20201125, end: 20201201

REACTIONS (3)
  - Headache [Unknown]
  - Ocular hypertension [Recovering/Resolving]
  - Off label use [Unknown]

NARRATIVE: CASE EVENT DATE: 20201102
